FAERS Safety Report 7284322-5 (Version None)
Quarter: 2011Q1

REPORT INFORMATION
  Report Type: 
  Country: None (occurrence: None)
  Receive Date: 20110209
  Receipt Date: 20110131
  Transmission Date: 20110831
  Serious: Yes (Hospitalization)
  Sender: FDA-Public Use
  Company Number: US-ASTRAZENECA-2010SE33294

PATIENT
  Age: 78 Year
  Sex: Female

DRUGS (14)
  1. DILTIAZEM [Concomitant]
     Dates: start: 20101201
  2. BRIMONIDINE [Concomitant]
     Dosage: ONE DROP IN EACH EYE TWICE A DAY
     Dates: start: 20101201
  3. DIOVAN [Concomitant]
     Dates: start: 20101201
  4. NEXIUM [Suspect]
     Route: 048
     Dates: start: 20101201
  5. PRILOSEC [Suspect]
     Indication: GASTROOESOPHAGEAL REFLUX DISEASE
     Route: 048
  6. PRILOSEC OTC [Suspect]
     Indication: GASTROOESOPHAGEAL REFLUX DISEASE
     Route: 048
  7. LORAZEPAM [Concomitant]
     Dates: start: 20101201
  8. TRILIPIX [Concomitant]
     Dates: start: 20101201
  9. SYNTHROID [Concomitant]
     Dates: start: 20101201
  10. ASPIRIN [Concomitant]
     Dates: start: 20101201
  11. ERYTHROMYCIN [Concomitant]
     Dosage: APPLY TO EYELIDS A NIGHT
     Dates: start: 20101201
  12. MELOXICAM [Concomitant]
     Dosage: HALF TABLET TWO TIMES A DAY
     Dates: start: 20101201
  13. TRAVATAN [Concomitant]
     Dosage: ONE DROP IN EACH EYE AT NIGHT
     Dates: start: 20101201
  14. ZANTAC OTC [Concomitant]

REACTIONS (3)
  - DRUG INEFFECTIVE [None]
  - HIP FRACTURE [None]
  - FALL [None]
